FAERS Safety Report 12892634 (Version 3)
Quarter: 2017Q1

REPORT INFORMATION
  Report Type: Spontaneous
  Country: US (occurrence: US)
  Receive Date: 20161028
  Receipt Date: 20170123
  Transmission Date: 20170428
  Serious: No
  Sender: FDA-Public Use
  Company Number: US-PFIZER INC-2016500075

PATIENT
  Age: 66 Year
  Sex: Female

DRUGS (2)
  1. IBRANCE [Suspect]
     Active Substance: PALBOCICLIB
     Dosage: 75 MG, UNK
     Dates: start: 20161001
  2. ANASTROZOLE. [Suspect]
     Active Substance: ANASTROZOLE
     Dosage: UNK
     Dates: start: 201610

REACTIONS (5)
  - Paraesthesia [Unknown]
  - Nasopharyngitis [Unknown]
  - Dry skin [Unknown]
  - Product use issue [Unknown]
  - Hypoaesthesia [Unknown]
